FAERS Safety Report 4349071-1 (Version None)
Quarter: 2004Q2

REPORT INFORMATION
  Report Type: 
  Country: None (occurrence: None)
  Receive Date: 20040427
  Receipt Date: 20040427
  Transmission Date: 20050107
  Serious: Yes (Life-Threatening, Hospitalization)
  Sender: FDA-Public Use
  Company Number: None

PATIENT
  Age: 59 Year
  Sex: Male
  Weight: 80.7 kg

DRUGS (6)
  1. ONTAK [Suspect]
     Indication: NON-SMALL CELL LUNG CANCER
     Dosage: 18 MCG/KG/DAY
     Dates: start: 20040419, end: 20040423
  2. K-DUR 10 [Concomitant]
  3. MAG OX [Concomitant]
  4. FLORINEF [Concomitant]
  5. CORTEF [Concomitant]
  6. OMEPROZOLE [Concomitant]

REACTIONS (4)
  - ALANINE AMINOTRANSFERASE INCREASED [None]
  - ASPARTATE AMINOTRANSFERASE INCREASED [None]
  - DYSPNOEA [None]
  - HYPOTENSION [None]
